FAERS Safety Report 7559857-8 (Version None)
Quarter: 2011Q2

REPORT INFORMATION
  Report Type: 
  Country: None (occurrence: None)
  Receive Date: 20110621
  Receipt Date: 20110617
  Transmission Date: 20111010
  Serious: Yes (Death)
  Sender: FDA-Public Use
  Company Number: FR-PFIZER INC-2011133187

PATIENT
  Age: 61 Year
  Sex: Female

DRUGS (4)
  1. PIPERACILLIN AND TAZOBACTAM [Suspect]
     Dosage: 4 G, 3X/DAY
     Route: 042
     Dates: start: 20101123, end: 20101125
  2. VANCOMYCIN [Suspect]
     Dosage: 1 G, 3X/DAY
     Route: 042
     Dates: start: 20101123, end: 20101125
  3. MORPHINE SULFATE [Suspect]
     Dosage: 20 MG, UNK
     Route: 048
     Dates: start: 20101123, end: 20101124
  4. ACUPAN [Suspect]
     Dosage: 20 MG, 4X/DAY
     Route: 048
     Dates: start: 20101123, end: 20101124

REACTIONS (2)
  - THROMBOCYTOPENIA [None]
  - HAEMORRHAGIC DIATHESIS [None]
